FAERS Safety Report 5269700-8 (Version None)
Quarter: 2007Q1

REPORT INFORMATION
  Report Type: 
  Country: None (occurrence: None)
  Receive Date: 20070313
  Receipt Date: 20070228
  Transmission Date: 20070707
  Serious: No
  Sender: FDA-Public Use
  Company Number: 2006-151567-NL

PATIENT
  Age: 26 Year
  Sex: Female

DRUGS (1)
  1. NUVARING [Suspect]
     Dosage: DF
     Dates: start: 20060922, end: 20070104

REACTIONS (3)
  - FOCAL NODULAR HYPERPLASIA [None]
  - HEPATOMEGALY [None]
  - LYMPHADENOPATHY [None]
